FAERS Safety Report 8317549-1 (Version None)
Quarter: 2012Q2

REPORT INFORMATION
  Report Type: 
  Country: None (occurrence: None)
  Receive Date: 20120427
  Receipt Date: 20120420
  Transmission Date: 20120825
  Serious: Yes (Death, Other)
  Sender: FDA-Public Use
  Company Number: PHHY2011JP81368

PATIENT
  Sex: Male
  Weight: 70 kg

DRUGS (5)
  1. PLATELETS [Concomitant]
     Dosage: 10 U, EVERY WEEK
     Dates: start: 20110404, end: 20110628
  2. EXJADE [Suspect]
     Indication: IRON OVERLOAD
     Dosage: 500 MG, DAILY
     Route: 048
     Dates: start: 20101014, end: 20101028
  3. FAMOTIDINE [Concomitant]
     Indication: PROPHYLAXIS
     Dosage: 20 MG, UNK
     Route: 048
     Dates: start: 20101014, end: 20110408
  4. URSO 250 [Concomitant]
     Indication: PROPHYLAXIS
     Dosage: 600 MG, UNK
     Route: 048
     Dates: start: 20101014
  5. RED BLOOD CELLS, CONCENTRATED [Concomitant]
     Dosage: 2 U, EVERY WEEK
     Dates: start: 20110401, end: 20110630

REACTIONS (5)
  - NEOPLASM MALIGNANT [None]
  - DRUG ERUPTION [None]
  - GRAFT VERSUS HOST DISEASE [None]
  - PAPULE [None]
  - NEOPLASM PROGRESSION [None]
